FAERS Safety Report 25048578 (Version 1)
Quarter: 2025Q1

REPORT INFORMATION
  Report Type: Spontaneous
  Country: US (occurrence: US)
  Receive Date: 20250307
  Receipt Date: 20250307
  Transmission Date: 20250408
  Serious: Yes (Hospitalization, Other)
  Sender: BRISTOL-MYERS SQUIBB COMPANY
  Company Number: US-BRISTOL-MYERS SQUIBB COMPANY-2025-029406

PATIENT
  Age: 74 Year
  Sex: Female
  Weight: 86.6 kg

DRUGS (14)
  1. REVLIMID [Suspect]
     Active Substance: LENALIDOMIDE
     Indication: Plasma cell myeloma
     Dosage: QD FOR 21 DAYS, THEN 7 DAYS OFF
     Route: 048
     Dates: start: 20250124
  2. ASPIRIN [Concomitant]
     Active Substance: ASPIRIN
  3. CLONAZEPAM [Concomitant]
     Active Substance: CLONAZEPAM
  4. FLUOXETINE [Concomitant]
     Active Substance: FLUOXETINE HYDROCHLORIDE
  5. MELATONIN [Concomitant]
     Active Substance: MELATONIN
  6. MIRTAZAPINE [Concomitant]
     Active Substance: MIRTAZAPINE
  7. PANTOPRAZOLE [Concomitant]
     Active Substance: PANTOPRAZOLE
  8. PREDNISONE [Concomitant]
     Active Substance: PREDNISONE
  9. DEXAMETHASONE [Concomitant]
     Active Substance: DEXAMETHASONE
  10. MONTELUKAST [Concomitant]
     Active Substance: MONTELUKAST
  11. ACYCLOVIR [Concomitant]
     Active Substance: ACYCLOVIR
  12. DARATUMUMAB [Concomitant]
     Active Substance: DARATUMUMAB
     Dates: start: 2025
  13. BORTEZOMIB [Concomitant]
     Active Substance: BORTEZOMIB
     Dates: start: 2025
  14. DEXAMETHASONE [Concomitant]
     Active Substance: DEXAMETHASONE
     Dates: start: 2025

REACTIONS (1)
  - Pulmonary embolism [Unknown]

NARRATIVE: CASE EVENT DATE: 20250201
